FAERS Safety Report 8480408-8 (Version None)
Quarter: 2012Q3

REPORT INFORMATION
  Report Type: 
  Country: None (occurrence: None)
  Receive Date: 20120702
  Receipt Date: 20120627
  Transmission Date: 20120928
  Serious: Yes (Other)
  Sender: FDA-Public Use
  Company Number: US-ROCHE-1048384

PATIENT
  Sex: Female
  Weight: 57.658 kg

DRUGS (2)
  1. XELODA [Suspect]
     Indication: BREAST CANCER METASTATIC
     Route: 048
     Dates: start: 20111201
  2. EYE DROP (UNK INGREDIENTS) [Concomitant]
     Indication: CATARACT
     Dates: start: 20120601

REACTIONS (12)
  - UNEVALUABLE EVENT [None]
  - SKIN DISORDER [None]
  - FINGER DEFORMITY [None]
  - SKIN DISCOLOURATION [None]
  - FALL [None]
  - DRY SKIN [None]
  - DIARRHOEA [None]
  - BLOOD GLUCOSE INCREASED [None]
  - SKIN EXFOLIATION [None]
  - CATARACT OPERATION [None]
  - DECREASED APPETITE [None]
  - HYPOAESTHESIA [None]
